FAERS Safety Report 15121710 (Version 6)
Quarter: 2018Q4

REPORT INFORMATION
  Report Type: Spontaneous
  Country: CA (occurrence: CA)
  Receive Date: 20180709
  Receipt Date: 20181214
  Transmission Date: 20190204
  Serious: Yes (Death, Hospitalization, Other)
  Sender: FDA-Public Use
  Company Number: CA-JNJFOC-20180707411

PATIENT
  Age: 63 Year
  Sex: Male

DRUGS (9)
  1. SPIRONOLACTONE. [Concomitant]
     Active Substance: SPIRONOLACTONE
     Route: 065
  2. ADEMPAS [Suspect]
     Active Substance: RIOCIGUAT
     Indication: PULMONARY HYPERTENSION
     Route: 048
  3. ADEMPAS [Suspect]
     Active Substance: RIOCIGUAT
     Indication: PULMONARY HYPERTENSION
     Route: 048
  4. XARELTO [Suspect]
     Active Substance: RIVAROXABAN
     Indication: PRODUCT USED FOR UNKNOWN INDICATION
     Route: 048
  5. ADEMPAS [Suspect]
     Active Substance: RIOCIGUAT
     Indication: PULMONARY HYPERTENSION
     Route: 048
  6. COLCHICINE. [Concomitant]
     Active Substance: COLCHICINE
     Route: 065
  7. CLONAZEPAM. [Concomitant]
     Active Substance: CLONAZEPAM
     Route: 065
  8. ADEMPAS [Suspect]
     Active Substance: RIOCIGUAT
     Indication: PULMONARY HYPERTENSION
     Route: 048
     Dates: start: 20160905
  9. LASIX [Concomitant]
     Active Substance: FUROSEMIDE
     Route: 065

REACTIONS (12)
  - Dyspnoea [Unknown]
  - Cardiac disorder [Fatal]
  - Muscle atrophy [Recovering/Resolving]
  - Loss of personal independence in daily activities [Recovering/Resolving]
  - Groin abscess [Recovering/Resolving]
  - Haematoma infection [Not Recovered/Not Resolved]
  - Fatigue [Not Recovered/Not Resolved]
  - Muscular weakness [Recovering/Resolving]
  - Blood pressure systolic decreased [Unknown]
  - Abscess [Unknown]
  - Abdominal distension [Unknown]
  - Subcutaneous haematoma [Unknown]

NARRATIVE: CASE EVENT DATE: 2018
